FAERS Safety Report 6095830-7 (Version None)
Quarter: 2009Q1

REPORT INFORMATION
  Report Type: 
  Country: None (occurrence: None)
  Receive Date: 20090227
  Receipt Date: 20080624
  Transmission Date: 20090719
  Serious: No
  Sender: FDA-Public Use
  Company Number: A0734539A

PATIENT
  Age: 39 Year
  Sex: Male

DRUGS (3)
  1. LAMICTAL [Suspect]
     Dosage: 100MG PER DAY
     Route: 048
     Dates: start: 20080201
  2. HERBAL MEDICATION [Concomitant]
  3. ASACOL [Concomitant]

REACTIONS (2)
  - ACNE [None]
  - ROSACEA [None]
